FAERS Safety Report 20027475 (Version 1)
Quarter: 2021Q4

REPORT INFORMATION
  Report Type: Spontaneous
  Country: US (occurrence: US)
  Receive Date: 20211103
  Receipt Date: 20211103
  Transmission Date: 20220303
  Serious: Yes (Disabling, Other)
  Sender: FDA-Public Use
  Company Number: US-REGENERON PHARMACEUTICALS, INC.-2021-97310

PATIENT

DRUGS (1)
  1. EYLEA [Suspect]
     Active Substance: AFLIBERCEPT
     Indication: Choroidal neovascularisation
     Dosage: UNK UNK, MONTHLY
     Route: 031
     Dates: start: 20210615

REACTIONS (2)
  - Blindness [Unknown]
  - Vision blurred [Unknown]

NARRATIVE: CASE EVENT DATE: 20210601
